FAERS Safety Report 7785813-0 (Version None)
Quarter: 2011Q3

REPORT INFORMATION
  Report Type: 
  Country: None (occurrence: None)
  Receive Date: 20110929
  Receipt Date: 20110919
  Transmission Date: 20111222
  Serious: Yes (Hospitalization, Other)
  Sender: FDA-Public Use
  Company Number: US-BAYER-2011-001629

PATIENT
  Age: 29 Year
  Sex: Female
  Weight: 68.027 kg

DRUGS (22)
  1. IBUPROFEN [Concomitant]
  2. APLENZIN [Concomitant]
  3. VISTARIL [Concomitant]
     Route: 048
  4. EPHEDRIN [Concomitant]
  5. TOPAMAX [Concomitant]
  6. PHENERGAN HCL [Concomitant]
  7. DONNATAL [Concomitant]
  8. CYMBALTA [Concomitant]
  9. YAZ [Suspect]
     Indication: CONTRACEPTION
     Dosage: UNK
     Route: 048
     Dates: start: 20070701, end: 20100101
  10. MIDRIN [Concomitant]
     Route: 048
  11. CALCIUM /VITAMIN D [Concomitant]
     Route: 048
  12. RETIN-A [Concomitant]
  13. WELLBUTRIN SR [Concomitant]
  14. REGLAN [Concomitant]
  15. TRAZODONE HYDROCHLORIDE [Concomitant]
  16. PREVACID [Concomitant]
     Route: 048
  17. VERAPAMIL [Concomitant]
  18. DEPLIN [Concomitant]
  19. WELLBUTRIN [Concomitant]
     Route: 048
  20. CELEXA [Concomitant]
  21. NEXIUM [Concomitant]
     Route: 048
  22. ZOMIG [Concomitant]

REACTIONS (7)
  - DEPRESSION [None]
  - PAIN [None]
  - CHOLECYSTITIS CHRONIC [None]
  - GALLBLADDER DISORDER [None]
  - DEPRESSION SUICIDAL [None]
  - ANXIETY [None]
  - BLOOD DISORDER [None]
